FAERS Safety Report 8418137-9 (Version None)
Quarter: 2012Q2

REPORT INFORMATION
  Report Type: 
  Country: None (occurrence: None)
  Receive Date: 20120607
  Receipt Date: 20120529
  Transmission Date: 20120825
  Serious: Yes (Other)
  Sender: FDA-Public Use
  Company Number: US-US-EMD SERONO, INC.-7136930

PATIENT
  Sex: Female

DRUGS (1)
  1. REBIF [Suspect]
     Indication: MULTIPLE SCLEROSIS
     Route: 058
     Dates: start: 20120420

REACTIONS (5)
  - LYME DISEASE [None]
  - ROCKY MOUNTAIN SPOTTED FEVER [None]
  - NAUSEA [None]
  - INFLUENZA LIKE ILLNESS [None]
  - DIZZINESS [None]
